FAERS Safety Report 5146925-3 (Version None)
Quarter: 2006Q4

REPORT INFORMATION
  Report Type: 
  Country: None (occurrence: None)
  Receive Date: 20060905
  Receipt Date: 20060612
  Transmission Date: 20070319
  Serious: No
  Sender: FDA-Public Use
  Company Number: 35163

PATIENT
  Age: 58 Year
  Sex: Female

DRUGS (7)
  1. NEVANAC [Suspect]
     Indication: PROPHYLAXIS
     Dates: start: 20060209, end: 20060214
  2. TAMOXIFEN CITRATE [Concomitant]
  3. FEMARA [Concomitant]
  4. FLAREX [Concomitant]
  5. VIGAMOX [Concomitant]
  6. TETRACAINE 0.5% STERI- UNITS [Concomitant]
  7. SYSTANE LUBRICANT EYE DROPS [Concomitant]

REACTIONS (2)
  - CORNEAL OPACITY [None]
  - VISUAL ACUITY REDUCED [None]
